FAERS Safety Report 18791577 (Version 1)
Quarter: 2021Q1

REPORT INFORMATION
  Report Type: Spontaneous
  Country: US (occurrence: US)
  Receive Date: 20210126
  Receipt Date: 20210126
  Transmission Date: 20210419
  Serious: No
  Sender: FDA-Public Use
  Company Number: US-PERRIGO-20US006970

PATIENT
  Sex: Female
  Weight: 63.49 kg

DRUGS (3)
  1. IBUPROFEN. [Suspect]
     Active Substance: IBUPROFEN
     Dosage: 25 MG, SINGLE
     Route: 048
     Dates: start: 20200510, end: 20200510
  2. NORETHINDRONE                      /00044901/ [Concomitant]
     Active Substance: NORETHINDRONE
     Indication: CONTRACEPTION
     Dosage: UNK
     Route: 065
     Dates: start: 201909
  3. IBUPROFEN. [Suspect]
     Active Substance: IBUPROFEN
     Indication: OFF LABEL USE
     Dosage: 25 MG, SINGLE
     Route: 048
     Dates: start: 202003, end: 202003

REACTIONS (3)
  - Throat irritation [Recovered/Resolved with Sequelae]
  - Off label use [Recovered/Resolved]
  - Dry throat [Recovered/Resolved]

NARRATIVE: CASE EVENT DATE: 2020
